FAERS Safety Report 19733986 (Version 1)
Quarter: 2021Q3

REPORT INFORMATION
  Report Type: Spontaneous
  Country: US (occurrence: US)
  Receive Date: 20210823
  Receipt Date: 20210823
  Transmission Date: 20211014
  Serious: No
  Sender: FDA-Public Use
  Company Number: US-ALLERGAN-2104772US

PATIENT
  Age: 78 Year
  Sex: Female
  Weight: 97.98 kg

DRUGS (3)
  1. PREDNISONE ACE OPTHAL SUSPENSION 1% [Suspect]
     Active Substance: PREDNISONE ACETATE
     Indication: PRODUCT USED FOR UNKNOWN INDICATION
     Dosage: UNK
     Dates: start: 202012
  2. MOXIFLOXACIN SOL HCL 0.5%: [Suspect]
     Active Substance: MOXIFLOXACIN
     Indication: PRODUCT USED FOR UNKNOWN INDICATION
     Dosage: UNK
     Dates: start: 202012
  3. KETOROLAC TROMETHAMINE 0.5% [Suspect]
     Active Substance: KETOROLAC TROMETHAMINE
     Indication: CATARACT
     Dosage: 1 GTT, QID
     Route: 047
     Dates: start: 202101

REACTIONS (3)
  - Insomnia [Unknown]
  - Product dispensing error [Unknown]
  - Blood pressure abnormal [Unknown]

NARRATIVE: CASE EVENT DATE: 202101
